FAERS Safety Report 18105820 (Version 1)
Quarter: 2020Q3

REPORT INFORMATION
  Report Type: Spontaneous
  Country: US (occurrence: US)
  Receive Date: 20200803
  Receipt Date: 20200803
  Transmission Date: 20201103
  Serious: No
  Sender: FDA-Public Use
  Company Number: US-PFIZER INC-2020279363

PATIENT
  Age: 38 Year
  Sex: Female

DRUGS (1)
  1. EUCRISA [Suspect]
     Active Substance: CRISABOROLE
     Dosage: UNK, 1X/DAY [APPLY TO AFFECTED AREAS ON ARMS, LEGS AND TRUNK QD (DAILY)]

REACTIONS (2)
  - Off label use [Unknown]
  - Pruritus [Unknown]
